FAERS Safety Report 24179906 (Version 1)
Quarter: 2024Q3

REPORT INFORMATION
  Report Type: Spontaneous
  Country: CN (occurrence: CN)
  Receive Date: 20240806
  Receipt Date: 20240806
  Transmission Date: 20241017
  Serious: Yes (Other)
  Sender: BAYER
  Company Number: CN-BAYER-2024A113141

PATIENT
  Age: 60 Year
  Sex: Male

DRUGS (2)
  1. ULTRAVIST [Suspect]
     Active Substance: IOPROMIDE
     Indication: Computerised tomogram head
     Dosage: 100 MG, ONCE
     Route: 042
     Dates: start: 20240725, end: 20240725
  2. ULTRAVIST [Suspect]
     Active Substance: IOPROMIDE
     Indication: Brain stem infarction

REACTIONS (3)
  - Haemoptysis [Recovering/Resolving]
  - Abdominal discomfort [Recovering/Resolving]
  - Blood pressure systolic increased [Recovering/Resolving]

NARRATIVE: CASE EVENT DATE: 20240725
